FAERS Safety Report 8397929-9 (Version None)
Quarter: 2012Q2

REPORT INFORMATION
  Report Type: 
  Country: None (occurrence: None)
  Receive Date: 20120531
  Receipt Date: 20120528
  Transmission Date: 20120825
  Serious: Yes (Hospitalization, Other)
  Sender: FDA-Public Use
  Company Number: PHHY2012CN026399

PATIENT
  Age: 75 Year
  Sex: Male

DRUGS (7)
  1. CLOPIDOGREL BISULFATE [Concomitant]
  2. BENAZEPRIL HYDROCHLORIDE [Suspect]
  3. ASPIRIN [Concomitant]
  4. VASOREL [Concomitant]
  5. LIPITOR [Concomitant]
  6. ISOSORBIDE MONONITRATE [Concomitant]
  7. METOPROLOL TARTRATE [Concomitant]

REACTIONS (9)
  - ELECTROCARDIOGRAM Q WAVE ABNORMAL [None]
  - TONSILLAR INFLAMMATION [None]
  - TONSILLAR HYPERTROPHY [None]
  - PHARYNGEAL DISORDER [None]
  - MENTAL DISORDER [None]
  - LEUKOPENIA [None]
  - VENTRICULAR HYPOKINESIA [None]
  - GRANULOCYTES ABNORMAL [None]
  - LYMPHOCYTE COUNT INCREASED [None]
